FAERS Safety Report 5187182-1 (Version None)
Quarter: 2006Q4

REPORT INFORMATION
  Report Type: 
  Country: None (occurrence: None)
  Receive Date: 20061214
  Receipt Date: 20061204
  Transmission Date: 20070319
  Serious: Yes (Disabling)
  Sender: FDA-Public Use
  Company Number: 2006150905

PATIENT
  Age: 80 Year
  Sex: Male

DRUGS (8)
  1. SPIRONOLACTONE [Suspect]
     Dates: start: 20051001
  2. INSPRA [Suspect]
     Dosage: 50 MG (50 MG, 1 IN 1 D), ORAL
     Route: 048
     Dates: start: 20060622, end: 20060831
  3. ALFACALCIDOL (ALFACALCIDOL) [Concomitant]
  4. AMIODARONE HCL [Concomitant]
  5. ATORVASTATIN CALCIUM [Concomitant]
  6. CALCICHEW (CALCIUM CARBONATE) [Concomitant]
  7. CILAZAPRIL (CILAZAPRIL) [Concomitant]
  8. CLOPIDOGREL [Concomitant]

REACTIONS (2)
  - CONDITION AGGRAVATED [None]
  - RASH GENERALISED [None]
